FAERS Safety Report 10217730 (Version 2)
Quarter: 2014Q2

REPORT INFORMATION
  Report Type: Spontaneous
  Country: US (occurrence: US)
  Receive Date: 20140604
  Receipt Date: 20140604
  Transmission Date: 20141212
  Serious: Yes (Hospitalization, Other)
  Sender: FDA-Public Use
  Company Number: US-RB-065902-14

PATIENT
  Age: 0 Year
  Sex: Male
  Weight: 4 kg

DRUGS (8)
  1. SUBOXONE FILM [Suspect]
     Indication: DRUG DEPENDENCE
     Dosage: SUBOXONE FILM
     Route: 064
     Dates: start: 2013, end: 201310
  2. BUPRENORPHINE GENERIC [Suspect]
     Indication: DRUG DEPENDENCE
     Route: 064
     Dates: start: 201310, end: 20140310
  3. BUPRENORPHINE GENERIC [Suspect]
     Route: 063
     Dates: start: 20140310
  4. PRENATAL VITAMIN [Concomitant]
     Indication: NUTRITIONAL SUPPLEMENTATION
     Dosage: TAKING 1 TABLET DAILY
     Route: 064
     Dates: start: 201310, end: 20140310
  5. PRENATAL VITAMIN [Concomitant]
     Dosage: TAKING 1 TABLET DAILY
     Route: 063
     Dates: start: 20140310
  6. CEPHALEXIN [Concomitant]
     Indication: MASTITIS
     Route: 063
     Dates: start: 2014, end: 201405
  7. CLINDAMYCIN [Concomitant]
     Indication: MASTITIS
     Route: 063
     Dates: start: 2014, end: 201405
  8. IBUPROFEN [Concomitant]
     Indication: MASTITIS
     Dosage: MATERNAL DOSING DETAILS UNKNOWN
     Route: 063
     Dates: start: 2014

REACTIONS (6)
  - Foetal exposure during pregnancy [Recovered/Resolved]
  - Premature baby [Recovered/Resolved]
  - Respiratory disorder neonatal [Recovered/Resolved]
  - Feeding disorder neonatal [Recovered/Resolved]
  - Exposure during breast feeding [Not Recovered/Not Resolved]
  - Low birth weight baby [Recovered/Resolved]
